FAERS Safety Report 7246965-4 (Version None)
Quarter: 2011Q1

REPORT INFORMATION
  Report Type: 
  Country: None (occurrence: None)
  Receive Date: 20110127
  Receipt Date: 20110118
  Transmission Date: 20110831
  Serious: Yes (Other)
  Sender: FDA-Public Use
  Company Number: HR-ASTRAZENECA-2011SE02882

PATIENT
  Age: 43 Year
  Sex: Male

DRUGS (7)
  1. IRUZID [Concomitant]
     Indication: HYPERTENSION
     Route: 048
     Dates: start: 20100301
  2. WELLBUTRIN [Concomitant]
     Indication: DEPRESSION
     Route: 048
     Dates: start: 20100301
  3. CONCOR [Concomitant]
     Indication: HYPERTENSION
     Route: 048
     Dates: start: 20100301
  4. SEROQUEL [Suspect]
     Route: 048
  5. SEROQUEL [Suspect]
     Indication: INSOMNIA
     Route: 048
     Dates: start: 20080101
  6. FEVARIN [Concomitant]
     Indication: DEPRESSION
     Route: 048
     Dates: start: 20100301
  7. TRICOR [Concomitant]
     Indication: HYPERLIPIDAEMIA
     Route: 048
     Dates: start: 20100301

REACTIONS (3)
  - ANGINA PECTORIS [None]
  - SLEEP APNOEA SYNDROME [None]
  - TACHYCARDIA [None]
